FAERS Safety Report 18514492 (Version 1)
Quarter: 2020Q4

REPORT INFORMATION
  Report Type: Spontaneous
  Country: CO (occurrence: CO)
  Receive Date: 20201117
  Receipt Date: 20201117
  Transmission Date: 20210114
  Serious: Yes (Other)
  Sender: FDA-Public Use
  Company Number: CO-VALIDUS PHARMACEUTICALS LLC-CO-2020VAL000966

PATIENT

DRUGS (1)
  1. METOPROLOL TARTRATE. [Suspect]
     Active Substance: METOPROLOL TARTRATE
     Indication: PRODUCT USED FOR UNKNOWN INDICATION
     Dosage: UNK
     Route: 064

REACTIONS (2)
  - Foetal growth restriction [Recovering/Resolving]
  - Foetal exposure during pregnancy [Unknown]
